FAERS Safety Report 8271806-6 (Version None)
Quarter: 2012Q2

REPORT INFORMATION
  Report Type: 
  Country: None (occurrence: None)
  Receive Date: 20120410
  Receipt Date: 20120405
  Transmission Date: 20120825
  Serious: Yes (Life-Threatening)
  Sender: FDA-Public Use
  Company Number: US-COVIDIEN/TYCO HEALTHCARE/MALLINCKRODT-T201201402

PATIENT
  Sex: Female

DRUGS (1)
  1. PAMELOR [Suspect]
     Dosage: UNK

REACTIONS (1)
  - THROAT TIGHTNESS [None]
